FAERS Safety Report 9008514 (Version 1)
Quarter: 2013Q1

REPORT INFORMATION
  Report Type: Spontaneous
  Country: GB (occurrence: GB)
  Receive Date: 20130111
  Receipt Date: 20130111
  Transmission Date: 20140127
  Serious: Yes (Hospitalization)
  Sender: FDA-Public Use
  Company Number: GB-PFIZER INC-2013011025

PATIENT
  Age: 5 Decade
  Sex: Male

DRUGS (1)
  1. CHAMPIX [Suspect]
     Dosage: UNK

REACTIONS (2)
  - Pericarditis [Unknown]
  - Angina pectoris [Unknown]
